APPROVED DRUG PRODUCT: DILTIAZEM HYDROCHLORIDE
Active Ingredient: DILTIAZEM HYDROCHLORIDE
Strength: 360MG
Dosage Form/Route: CAPSULE, EXTENDED RELEASE;ORAL
Application: A209766 | Product #001
Applicant: PH HEALTH LTD
Approved: May 30, 2018 | RLD: No | RS: No | Type: DISCN